FAERS Safety Report 7251175-0 (Version None)
Quarter: 2011Q1

REPORT INFORMATION
  Report Type: 
  Country: None (occurrence: None)
  Receive Date: 20110128
  Receipt Date: 20110119
  Transmission Date: 20110831
  Serious: Yes (Other)
  Sender: FDA-Public Use
  Company Number: US-ASTRAZENECA-2010SE61045

PATIENT
  Age: 31168 Day
  Sex: Male
  Weight: 62.6 kg

DRUGS (3)
  1. PRILOSEC OTC [Suspect]
     Indication: DYSPEPSIA
     Route: 048
     Dates: start: 20101216, end: 20101219
  2. BLOOD THINNER [Concomitant]
  3. ENTOCORT EC [Suspect]
     Indication: COELIAC DISEASE
     Route: 048

REACTIONS (9)
  - SPEECH DISORDER [None]
  - DYSPEPSIA [None]
  - LOSS OF CONSCIOUSNESS [None]
  - INCOHERENT [None]
  - PALLOR [None]
  - HYPERHIDROSIS [None]
  - ATRIAL FIBRILLATION [None]
  - FEELING OF BODY TEMPERATURE CHANGE [None]
  - NAUSEA [None]
